FAERS Safety Report 5031738-3 (Version None)
Quarter: 2006Q2

REPORT INFORMATION
  Report Type: 
  Country: None (occurrence: None)
  Receive Date: 20060619
  Receipt Date: 20060609
  Transmission Date: 20061013
  Serious: Yes (Other)
  Sender: FDA-Public Use
  Company Number: 2006-06-0427

PATIENT
  Sex: Female

DRUGS (2)
  1. INTRON A [Suspect]
     Indication: B-CELL LYMPHOMA
     Dates: start: 20010101, end: 20060501
  2. DEROXAT [Concomitant]

REACTIONS (1)
  - MALIGNANT HISTIOCYTOSIS [None]
